FAERS Safety Report 25645688 (Version 2)
Quarter: 2025Q3

REPORT INFORMATION
  Report Type: Spontaneous
  Country: US (occurrence: US)
  Receive Date: 20250805
  Receipt Date: 20250814
  Transmission Date: 20251021
  Serious: No
  Sender: ROCHE
  Company Number: US-ROCHE-10000350055

PATIENT
  Age: 16 Year
  Sex: Female
  Weight: 54.43 kg

DRUGS (3)
  1. XOLAIR PFS [Suspect]
     Active Substance: OMALIZUMAB
     Indication: Urticaria
     Dosage: STRENGTH: 300MG/2ML
     Route: 058
     Dates: start: 202503, end: 202505
  2. XOLAIR PFS [Suspect]
     Active Substance: OMALIZUMAB
  3. XOLAIR PFS [Suspect]
     Active Substance: OMALIZUMAB
     Indication: Urticaria
     Route: 058
     Dates: start: 202505

REACTIONS (3)
  - Device issue [Unknown]
  - Exposure via skin contact [Unknown]
  - No adverse event [Unknown]

NARRATIVE: CASE EVENT DATE: 20250722
